FAERS Safety Report 13895053 (Version 1)
Quarter: 2017Q3

REPORT INFORMATION
  Report Type: Spontaneous
  Country: US (occurrence: US)
  Receive Date: 20170817
  Receipt Date: 20170817
  Transmission Date: 20171127
  Serious: No
  Sender: FDA-Public Use
  Company Number: None

PATIENT
  Sex: Male
  Weight: 110.25 kg

DRUGS (16)
  1. OMEGA 3 [Concomitant]
     Active Substance: OMEGA-3 FATTY ACIDS
  2. APPLE CIDER VINEGAR [Concomitant]
     Active Substance: APPLE CIDER VINEGAR
  3. TEMAZEPAM. [Concomitant]
     Active Substance: TEMAZEPAM
  4. VITAMIN B6 [Concomitant]
     Active Substance: PYRIDOXINE HYDROCHLORIDE
  5. MAGNESIUM [Concomitant]
     Active Substance: MAGNESIUM
  6. VITAMIN K2 [Concomitant]
     Active Substance: MENAQUINONE 6
  7. POTASSIUM [Concomitant]
     Active Substance: POTASSIUM
  8. PRISTIQ EXTENDED-RELEASE [Suspect]
     Active Substance: DESVENLAFAXINE SUCCINATE
     Indication: ANXIETY
  9. PRISTIQ EXTENDED-RELEASE [Suspect]
     Active Substance: DESVENLAFAXINE SUCCINATE
     Indication: DEPRESSION
  10. VITAMIN D3 [Concomitant]
     Active Substance: CHOLECALCIFEROL
  11. GRAPE SEED EXTRACT [Concomitant]
     Active Substance: GRAPE SEED EXTRACT
  12. ECOTRIN [Concomitant]
     Active Substance: ASPIRIN
  13. FOLATE [Concomitant]
     Active Substance: FOLATE SODIUM
  14. VITAMIN B12 [Concomitant]
     Active Substance: CYANOCOBALAMIN
  15. COQ 10 [Concomitant]
     Active Substance: UBIDECARENONE
  16. CALCIUM [Concomitant]
     Active Substance: CALCIUM

REACTIONS (17)
  - Anxiety [None]
  - Blood glucose increased [None]
  - Blood testosterone decreased [None]
  - Blood cholesterol increased [None]
  - Withdrawal syndrome [None]
  - Weight increased [None]
  - Blood triglycerides increased [None]
  - Headache [None]
  - Lethargy [None]
  - Blood pressure increased [None]
  - Asthenia [None]
  - Vision blurred [None]
  - Disturbance in attention [None]
  - Eye pain [None]
  - Dizziness [None]
  - Confusional state [None]
  - Depression [None]

NARRATIVE: CASE EVENT DATE: 20170817
